FAERS Safety Report 5898807-7 (Version None)
Quarter: 2008Q3

REPORT INFORMATION
  Report Type: 
  Country: None (occurrence: None)
  Receive Date: 20080925
  Receipt Date: 20080701
  Transmission Date: 20090109
  Serious: No
  Sender: FDA-Public Use
  Company Number: A0735607A

PATIENT
  Age: 31 Year
  Sex: Male

DRUGS (5)
  1. WELLBUTRIN XL [Suspect]
     Indication: ANXIETY
     Dosage: 150MG PER DAY
     Route: 048
     Dates: start: 20080601, end: 20080601
  2. WELLBUTRIN [Suspect]
     Indication: ANXIETY
     Dosage: 100MG PER DAY
     Route: 048
     Dates: start: 20080601
  3. TESTOSTERONE [Suspect]
     Dosage: 15MG PER DAY
  4. CLARITIN [Concomitant]
  5. IBUPROFEN [Concomitant]

REACTIONS (2)
  - PAIN IN JAW [None]
  - THERAPEUTIC RESPONSE UNEXPECTED [None]
